FAERS Safety Report 5456959-7 (Version None)
Quarter: 2007Q3

REPORT INFORMATION
  Report Type: 
  Country: None (occurrence: None)
  Receive Date: 20070918
  Receipt Date: 20061130
  Transmission Date: 20080115
  Serious: No
  Sender: FDA-Public Use
  Company Number: US-ASTRAZENECA-2006UW26992

PATIENT
  Age: 53 Year
  Sex: Female

DRUGS (5)
  1. SEROQUEL [Suspect]
     Route: 048
  2. SEROQUEL [Suspect]
     Route: 048
  3. GEODON [Suspect]
     Dates: start: 20061101
  4. ACTOS [Concomitant]
  5. LEVOXYL [Concomitant]

REACTIONS (7)
  - ANXIETY [None]
  - BLOOD CREATININE INCREASED [None]
  - BLOOD UREA INCREASED [None]
  - DYSPNOEA [None]
  - OEDEMA [None]
  - RENAL DISORDER [None]
  - WEIGHT INCREASED [None]
